FAERS Safety Report 5598622-8 (Version None)
Quarter: 2007Q4

REPORT INFORMATION
  Report Type: 
  Country: None (occurrence: None)
  Receive Date: 20071226
  Receipt Date: 20071007
  Transmission Date: 20080405
  Serious: No
  Sender: FDA-Public Use
  Company Number: 2007PV033542

PATIENT
  Age: 71 Year
  Sex: Male

DRUGS (8)
  1. SYMLIN [Suspect]
     Indication: TYPE 2 DIABETES MELLITUS
     Dosage: 84, 12, 90, 30 MCG, TID, SC
     Route: 058
     Dates: start: 20060101, end: 20060101
  2. SYMLIN [Suspect]
     Indication: WEIGHT CONTROL
     Dosage: 84, 12, 90, 30 MCG, TID, SC
     Route: 058
     Dates: start: 20060101, end: 20060101
  3. SYMLIN [Suspect]
     Indication: TYPE 2 DIABETES MELLITUS
     Dosage: 84, 12, 90, 30 MCG, TID, SC
     Route: 058
     Dates: start: 20070101, end: 20070101
  4. SYMLIN [Suspect]
     Indication: WEIGHT CONTROL
     Dosage: 84, 12, 90, 30 MCG, TID, SC
     Route: 058
     Dates: start: 20070101, end: 20070101
  5. SYMLIN [Suspect]
     Indication: TYPE 2 DIABETES MELLITUS
     Dosage: 84, 12, 90, 30 MCG, TID, SC
     Route: 058
     Dates: start: 20070101
  6. SYMLIN [Suspect]
     Indication: WEIGHT CONTROL
     Dosage: 84, 12, 90, 30 MCG, TID, SC
     Route: 058
     Dates: start: 20070101
  7. INSULIN [Concomitant]
  8. NEXIUM [Concomitant]

REACTIONS (2)
  - GASTROOESOPHAGEAL REFLUX DISEASE [None]
  - NAUSEA [None]
